FAERS Safety Report 19400127 (Version 14)
Quarter: 2021Q3

REPORT INFORMATION
  Report Type: Report from Study
  Country: GT (occurrence: GT)
  Receive Date: 20210610
  Receipt Date: 20210715
  Transmission Date: 20211014
  Serious: Yes (Death, Life-Threatening, Hospitalization)
  Sender: FDA-Public Use
  Company Number: GT-EISAI MEDICAL RESEARCH-EC-2021-094243

PATIENT
  Age: 56 Year
  Sex: Female
  Weight: 39.5 kg

DRUGS (7)
  1. RIVAROXABAN [Concomitant]
     Active Substance: RIVAROXABAN
     Dates: start: 20210521
  2. PEMBROLIZUMAB. [Suspect]
     Active Substance: PEMBROLIZUMAB
  3. LENVATINIB [Suspect]
     Active Substance: LENVATINIB
     Indication: RENAL CELL CARCINOMA
     Route: 048
     Dates: start: 20210525, end: 20210606
  4. ARGININE ASPARTATE [Concomitant]
     Active Substance: ARGININE ASPARTATE
     Dates: start: 20210602
  5. MK?1308 [Suspect]
     Active Substance: QUAVONLIMAB
     Indication: RENAL CELL CARCINOMA
     Dosage: MK?1308 25 MG + MK?3475 400MG
     Route: 041
     Dates: start: 20210525, end: 20210525
  6. ESOMEPRAZOLE. [Concomitant]
     Active Substance: ESOMEPRAZOLE MAGNESIUM
     Dates: start: 20210602
  7. LEVOTHYROXINE SODIUM. [Concomitant]
     Active Substance: LEVOTHYROXINE SODIUM
     Dates: start: 20210521

REACTIONS (2)
  - Ischaemic stroke [Recovered/Resolved with Sequelae]
  - Seizure [Fatal]

NARRATIVE: CASE EVENT DATE: 20210604
